FAERS Safety Report 20264905 (Version 2)
Quarter: 2022Q1

REPORT INFORMATION
  Report Type: Spontaneous
  Country: GB (occurrence: GB)
  Receive Date: 20211231
  Receipt Date: 20220113
  Transmission Date: 20220423
  Serious: Yes (Other)
  Sender: FDA-Public Use
  Company Number: GB-NOVARTISPH-NVSC2021GB299214

PATIENT
  Sex: Female

DRUGS (1)
  1. ESTRADIOL [Suspect]
     Active Substance: ESTRADIOL
     Indication: Transgender operation
     Dosage: UNK, (FOR 6 YEARS)
     Route: 065

REACTIONS (6)
  - Suicidal ideation [Unknown]
  - Suicide attempt [Unknown]
  - Illness [Unknown]
  - Oestrogen deficiency [Unknown]
  - Depression [Unknown]
  - Product supply issue [Unknown]
